FAERS Safety Report 8153975-1 (Version None)
Quarter: 2012Q1

REPORT INFORMATION
  Report Type: 
  Country: None (occurrence: None)
  Receive Date: 20120221
  Receipt Date: 20120221
  Transmission Date: 20120608
  Serious: Yes (Other)
  Sender: FDA-Public Use
  Company Number: None

PATIENT
  Sex: Male
  Weight: 87.543 kg

DRUGS (9)
  1. LOSARTAN POTASSIUM [Suspect]
     Indication: HYPERTENSION
     Dosage: 25
     Route: 048
     Dates: start: 20110306, end: 20120217
  2. FISH OIL [Concomitant]
     Route: 048
  3. BISOPROLOL FUMARATE [Concomitant]
     Route: 048
  4. XANAX [Concomitant]
     Route: 048
  5. VITAMIN D [Concomitant]
     Route: 048
  6. ATENOLOL [Concomitant]
     Route: 048
  7. ZANTAC [Concomitant]
     Route: 048
  8. ZALEPLON [Concomitant]
     Route: 048
  9. MELATONIN [Concomitant]
     Route: 048

REACTIONS (3)
  - VISION BLURRED [None]
  - DIPLOPIA [None]
  - BLOOD PRESSURE INCREASED [None]
